FAERS Safety Report 7735209-2 (Version None)
Quarter: 2011Q3

REPORT INFORMATION
  Report Type: 
  Country: None (occurrence: None)
  Receive Date: 20110907
  Receipt Date: 20110831
  Transmission Date: 20111222
  Serious: Yes (Other)
  Sender: FDA-Public Use
  Company Number: PHHY2011BR69381

PATIENT
  Age: 85 Year
  Sex: Male

DRUGS (4)
  1. BUFFERIN [Suspect]
     Indication: CARDIAC DISORDER
     Dosage: 1 DF, QD (AFTER LUNCH)
  2. LOSARTAN POTASSIUM [Concomitant]
     Indication: BLOOD PRESSURE
     Dosage: 1 DF, QD
  3. CITALOPRAM [Concomitant]
     Indication: IRRITABILITY
     Dosage: 1 DF, QD
  4. PROPATYLNITRATE [Concomitant]
     Indication: INFARCTION
     Dosage: 2 DF, QD

REACTIONS (2)
  - DEMENTIA ALZHEIMER'S TYPE [None]
  - IRRITABILITY [None]
